FAERS Safety Report 6198467-4 (Version None)
Quarter: 2009Q2

REPORT INFORMATION
  Report Type: 
  Country: None (occurrence: None)
  Receive Date: 20090521
  Receipt Date: 20090513
  Transmission Date: 20091009
  Serious: Yes (Hospitalization)
  Sender: FDA-Public Use
  Company Number: PHHY2009GB07577

PATIENT
  Sex: Female

DRUGS (3)
  1. SANDIMMUNE [Suspect]
     Route: 048
  2. SANDIMMUNE [Suspect]
     Route: 042
  3. SANDIMMUNE [Suspect]
     Route: 048

REACTIONS (4)
  - GASTROINTESTINAL TUBE INSERTION [None]
  - MALAISE [None]
  - RENAL FAILURE ACUTE [None]
  - TRANSPLANT FAILURE [None]
